FAERS Safety Report 9164119 (Version 1)
Quarter: 2013Q1

REPORT INFORMATION
  Report Type: Spontaneous
  Country: DE (occurrence: DE)
  Receive Date: 20130315
  Receipt Date: 20130315
  Transmission Date: 20140127
  Serious: Yes (Death, Hospitalization, Other)
  Sender: FDA-Public Use
  Company Number: DE-AMGEN-DEUSP2013015522

PATIENT
  Age: 70 Year
  Sex: Male
  Weight: 120 kg

DRUGS (6)
  1. NEUPOGEN [Suspect]
     Indication: PROPHYLAXIS
     Dosage: UNK
     Dates: start: 20130218
  2. RITUXIMAB [Concomitant]
     Dosage: UNK
     Dates: start: 20121205
  3. CYCLOPHOSPHAMIDE [Concomitant]
     Dosage: UNK
     Dates: start: 20121205
  4. DOXORUBICIN [Concomitant]
     Dosage: UNK
     Dates: start: 20121205
  5. ONCOVIN [Concomitant]
     Dosage: UNK
     Dates: start: 20121205
  6. PREDNISOLONE [Concomitant]
     Dosage: UNK
     Dates: start: 20121205

REACTIONS (6)
  - Multi-organ failure [Fatal]
  - Cardiac failure [Fatal]
  - Respiratory failure [Unknown]
  - Leukocytosis [Unknown]
  - Candida infection [Unknown]
  - Leukopenia [Unknown]
